FAERS Safety Report 14095741 (Version 2)
Quarter: 2017Q4

REPORT INFORMATION
  Report Type: Spontaneous
  Country: US (occurrence: US)
  Receive Date: 20171016
  Receipt Date: 20171031
  Transmission Date: 20180321
  Serious: No
  Sender: FDA-Public Use
  Company Number: US-ACTELION-A-US2017-160899

PATIENT
  Age: 71 Year
  Sex: Female

DRUGS (3)
  1. EFUDEX [Concomitant]
     Active Substance: FLUOROURACIL
  2. CLOBETASOL [Concomitant]
     Active Substance: CLOBETASOL
  3. VALCHLOR [Suspect]
     Active Substance: MECHLORETHAMINE
     Indication: MYCOSIS FUNGOIDES
     Dosage: UNK
     Route: 061
     Dates: start: 20170811

REACTIONS (4)
  - Application site rash [Unknown]
  - Application site pain [Unknown]
  - Application site pruritus [Unknown]
  - Application site erythema [Unknown]
